FAERS Safety Report 13042726 (Version 2)
Quarter: 2017Q2

REPORT INFORMATION
  Report Type: Spontaneous
  Country: US (occurrence: US)
  Receive Date: 20161219
  Receipt Date: 20170612
  Transmission Date: 20170830
  Serious: No
  Sender: FDA-Public Use
  Company Number: US-SEPTODONT-201603384

PATIENT
  Age: 62 Year
  Sex: Male
  Weight: 81.65 kg

DRUGS (2)
  1. CARBOCAINE [Suspect]
     Active Substance: MEPIVACAINE HYDROCHLORIDE
     Indication: LOCAL ANAESTHESIA
     Dosage: 1/4 CARPULE ADMINISTERED
     Route: 004
     Dates: start: 20160502
  2. SEPTOCAINE AND EPINEPHRINE [Suspect]
     Active Substance: ARTICAINE HYDROCHLORIDE\EPINEPHRINE BITARTRATE
     Indication: LOCAL ANAESTHESIA
     Dosage: 1/3 CARTRIDGE ADMINISTERED
     Route: 004
     Dates: start: 20160502

REACTIONS (3)
  - Hypoaesthesia oral [Recovering/Resolving]
  - Hypoaesthesia oral [Recovering/Resolving]
  - Paraesthesia [Recovering/Resolving]

NARRATIVE: CASE EVENT DATE: 20160510
